FAERS Safety Report 10468078 (Version 1)
Quarter: 2014Q3

REPORT INFORMATION
  Report Type: Spontaneous
  Country: IT (occurrence: IT)
  Receive Date: 20140922
  Receipt Date: 20140922
  Transmission Date: 20150326
  Serious: Yes (Other)
  Sender: FDA-Public Use
  Company Number: IT-BAXTER-2014BAX055576

PATIENT
  Age: 50 Year
  Sex: Female

DRUGS (4)
  1. HOLOXAN [Suspect]
     Active Substance: IFOSFAMIDE
     Indication: LEIOMYOSARCOMA
     Dosage: FROM DAY 1 TO DAY 3
     Route: 042
  2. HOLOXAN [Suspect]
     Active Substance: IFOSFAMIDE
     Route: 042
  3. UROMITEXAN 400 MG/ 4ML [Suspect]
     Active Substance: MESNA
     Indication: DRUG TOXICITY PROPHYLAXIS
     Route: 065
  4. EPIRUBICIN [Suspect]
     Active Substance: EPIRUBICIN
     Indication: LEIOMYOSARCOMA
     Route: 065

REACTIONS (3)
  - Recurrent cancer [Recovered/Resolved]
  - Disease recurrence [Recovered/Resolved]
  - Leukopenia [Unknown]
